APPROVED DRUG PRODUCT: STERILE WATER FOR INJECTION IN PLASTIC CONTAINER
Active Ingredient: STERILE WATER FOR INJECTION
Strength: 100%
Dosage Form/Route: LIQUID;N/A
Application: N018233 | Product #001 | TE Code: AP
Applicant: OTSUKA ICU MEDICAL LLC
Approved: Approved Prior to Jan 1, 1982 | RLD: Yes | RS: Yes | Type: RX